FAERS Safety Report 8664392 (Version 2)
Quarter: 2012Q4

REPORT INFORMATION
  Report Type: 
  Country: CA (occurrence: CA)
  Receive Date: 20120713
  Receipt Date: 20121214
  Transmission Date: 20130627
  Serious: Yes (Life-Threatening)
  Sender: FDA-Public Use
  Company Number: CA-SANOFI-AVENTIS-2012SA048221

PATIENT
  Age: 43 Year
  Sex: Female

DRUGS (4)
  1. TAXOTERE [Suspect]
     Indication: BREAST CANCER
     Dosage: dosage form: solution intravenous
     Route: 042
     Dates: start: 2004
  2. HYDROMORPHONE [Concomitant]
  3. NORTRIPTYLINE [Concomitant]
     Dates: start: 2004
  4. PAMIDRONATE DISODIUM [Concomitant]
     Dates: start: 2004

REACTIONS (5)
  - Lung infiltration [Recovered/Resolved]
  - Cough [Recovered/Resolved]
  - Dyspnoea [Recovered/Resolved]
  - Hypoxia [Recovered/Resolved]
  - Respiratory failure [Recovered/Resolved]
